FAERS Safety Report 21217574 (Version 1)
Quarter: 2022Q3

REPORT INFORMATION
  Report Type: Spontaneous
  Country: US (occurrence: US)
  Receive Date: 20220816
  Receipt Date: 20220816
  Transmission Date: 20221027
  Serious: Yes (Other)
  Sender: FDA-Public Use
  Company Number: US-PFIZER INC-202201057453

PATIENT
  Age: 51 Year
  Sex: Female

DRUGS (1)
  1. XELJANZ XR [Suspect]
     Active Substance: TOFACITINIB CITRATE
     Dosage: 11 MG
     Dates: start: 202111

REACTIONS (7)
  - Vertigo [Unknown]
  - Hypertension [Unknown]
  - Chest pain [Unknown]
  - Headache [Unknown]
  - Sinusitis [Unknown]
  - Illness [Unknown]
  - Infection [Unknown]
